FAERS Safety Report 9993576 (Version 2)
Quarter: 2014Q2

REPORT INFORMATION
  Report Type: Spontaneous
  Country: ID (occurrence: ID)
  Receive Date: 20140310
  Receipt Date: 20140604
  Transmission Date: 20141212
  Serious: Yes (Death)
  Sender: FDA-Public Use
  Company Number: ID-ABBVIE-14P-079-1209309-00

PATIENT
  Age: 1 Day
  Sex: Female

DRUGS (1)
  1. SURVANTA [Suspect]
     Indication: ACUTE RESPIRATORY DISTRESS SYNDROME
     Dates: start: 20140303

REACTIONS (1)
  - Sepsis [Fatal]
